FAERS Safety Report 10247502 (Version 1)
Quarter: 2014Q2

REPORT INFORMATION
  Report Type: Spontaneous
  Country: BE (occurrence: BE)
  Receive Date: 20140619
  Receipt Date: 20140619
  Transmission Date: 20141212
  Serious: Yes (Hospitalization)
  Sender: FDA-Public Use
  Company Number: BE-PFIZER INC-2014163654

PATIENT
  Age: 88 Year
  Sex: Female

DRUGS (6)
  1. DIFLUCAN [Suspect]
     Dosage: 1 DF, 1X/DAY
     Route: 048
  2. ZOCOR [Concomitant]
     Dosage: 20 MG, 1X/DAY
     Route: 048
     Dates: end: 20140423
  3. EMCONCOR [Concomitant]
     Dosage: 5 MG, 1X/DAY
     Route: 048
  4. L-THYROXIN [Concomitant]
     Dosage: UNK
     Route: 048
  5. PANTOMED [Concomitant]
     Dosage: 40 MG, 1X/DAY
     Route: 048
  6. PRADAXA [Concomitant]
     Dosage: 110 MG, 2X/DAY
     Route: 048

REACTIONS (1)
  - Pharyngeal haemorrhage [Recovered/Resolved]
